FAERS Safety Report 4487672-0 (Version None)
Quarter: 2004Q4

REPORT INFORMATION
  Report Type: 
  Country: None (occurrence: None)
  Receive Date: 20041027
  Receipt Date: 20041027
  Transmission Date: 20050328
  Serious: Yes (Other)
  Sender: FDA-Public Use
  Company Number: None

PATIENT
  Age: 33 Year
  Sex: Female
  Weight: 83.9154 kg

DRUGS (3)
  1. CELEXA [Suspect]
     Indication: ANXIETY
     Dosage: 10 MG ONCE A DAY ORAL
     Route: 048
     Dates: start: 20040910, end: 20041025
  2. CELEXA [Suspect]
     Indication: DEPRESSION
     Dosage: 10 MG ONCE A DAY ORAL
     Route: 048
     Dates: start: 20040910, end: 20041025
  3. ALEVE [Suspect]
     Indication: BACK PAIN
     Dosage: 220 MG TWICE A DAY ORAL
     Route: 048
     Dates: start: 20041001, end: 20041003

REACTIONS (3)
  - ANXIETY [None]
  - CHEST PAIN [None]
  - DISCOMFORT [None]
